FAERS Safety Report 5677012-3 (Version None)
Quarter: 2008Q1

REPORT INFORMATION
  Report Type: 
  Country: None (occurrence: None)
  Receive Date: 20080324
  Receipt Date: 20080314
  Transmission Date: 20080703
  Serious: Yes (Hospitalization)
  Sender: FDA-Public Use
  Company Number: PHHO2007US17958

PATIENT
  Age: 54 Year
  Sex: Male
  Weight: 70 kg

DRUGS (5)
  1. NEORAL [Suspect]
     Indication: LIVER TRANSPLANT
     Dosage: 0.5MG QAM / 1MG QPM
     Route: 048
     Dates: start: 20070915
  2. VALCYTE [Suspect]
     Dosage: 450 MG / DAY
     Route: 048
     Dates: start: 20070906
  3. VALCYTE [Suspect]
     Dosage: 450 MG / DAY
     Route: 048
     Dates: start: 20071017
  4. MYFORTIC [Suspect]
     Indication: LIVER TRANSPLANT
     Dosage: 360 MG, BID
     Route: 048
     Dates: start: 20071009
  5. MYFORTIC [Suspect]
     Dosage: 360 MG, BID
     Route: 048
     Dates: start: 20071017

REACTIONS (9)
  - DISEASE PROGRESSION [None]
  - DYSPNOEA [None]
  - FATIGUE [None]
  - HAEMATOCRIT DECREASED [None]
  - HAEMOGLOBIN DECREASED [None]
  - NEUTROPENIA [None]
  - PANCYTOPENIA [None]
  - PLATELET COUNT DECREASED [None]
  - SOMNOLENCE [None]
